FAERS Safety Report 7461588-X (Version None)
Quarter: 2011Q2

REPORT INFORMATION
  Report Type: 
  Country: None (occurrence: None)
  Receive Date: 20110428
  Receipt Date: 20110415
  Transmission Date: 20111010
  Serious: Yes (Hospitalization)
  Sender: FDA-Public Use
  Company Number: JPI-P-014625

PATIENT
  Age: 58 Year
  Sex: Male
  Weight: 102.0593 kg

DRUGS (9)
  1. PIOGLITAZONE [Concomitant]
  2. FUROSEMIDE [Concomitant]
  3. GLIMEPIRIDE [Concomitant]
  4. NORMODYNE, TRANDATE [Concomitant]
  5. SIMVASTATIN [Concomitant]
  6. XYREM [Suspect]
     Indication: NARCOLEPSY
     Dosage: 6 GM (3 GM, 2 IN 1 D), ORAL; 4.5 GM (2.25 GM, 2 IN 1 D), ORAL
     Route: 048
     Dates: start: 20110326
  7. METFORMIN HCL [Concomitant]
  8. OLMESARTAN MEDOXOMIL [Concomitant]
  9. SITAGLIPTIN [Concomitant]

REACTIONS (9)
  - ATRIOVENTRICULAR BLOCK [None]
  - VISION BLURRED [None]
  - DECREASED APPETITE [None]
  - BLOOD PRESSURE INCREASED [None]
  - WEIGHT DECREASED [None]
  - FEELING JITTERY [None]
  - HEADACHE [None]
  - CHEST DISCOMFORT [None]
  - NAUSEA [None]
